FAERS Safety Report 4738095-8 (Version None)
Quarter: 2005Q3

REPORT INFORMATION
  Report Type: 
  Country: None (occurrence: None)
  Receive Date: 20050805
  Receipt Date: 20050805
  Transmission Date: 20060218
  Serious: Yes (Life-Threatening)
  Sender: FDA-Public Use
  Company Number: None

PATIENT
  Age: 82 Year
  Sex: Male
  Weight: 90 kg

DRUGS (1)
  1. HEPARIN [Suspect]
     Indication: ATRIAL FIBRILLATION
     Dosage: 3,600 UNITS/HOUR
     Dates: start: 20050501, end: 20050502

REACTIONS (4)
  - ASPIRATION [None]
  - HAEMATEMESIS [None]
  - PLATELET COUNT DECREASED [None]
  - PROCEDURAL COMPLICATION [None]
